FAERS Safety Report 7319350-4 (Version None)
Quarter: 2011Q1

REPORT INFORMATION
  Report Type: 
  Country: None (occurrence: None)
  Receive Date: 20110228
  Receipt Date: 20100211
  Transmission Date: 20110831
  Serious: No
  Sender: FDA-Public Use
  Company Number: A0844038A

PATIENT
  Age: 38 Year
  Sex: Female

DRUGS (4)
  1. NEXIUM [Concomitant]
  2. LORAZEPAM [Concomitant]
  3. LAMICTAL [Suspect]
     Indication: BIPOLAR DISORDER
     Dosage: 100TAB PER DAY
     Route: 048
     Dates: start: 20091231
  4. NICOTINE PATCH [Concomitant]

REACTIONS (7)
  - PARAESTHESIA [None]
  - BLISTER [None]
  - RASH [None]
  - WEIGHT DECREASED [None]
  - RASH PRURITIC [None]
  - GINGIVAL PAIN [None]
  - LYMPHADENOPATHY [None]
